FAERS Safety Report 5157931-7 (Version None)
Quarter: 2006Q4

REPORT INFORMATION
  Report Type: 
  Country: None (occurrence: None)
  Receive Date: 20061116
  Receipt Date: 20061106
  Transmission Date: 20070319
  Serious: Yes (Death)
  Sender: FDA-Public Use
  Company Number: 2006135252

PATIENT
  Age: 19 Year
  Sex: 0

DRUGS (3)
  1. NIFEDIPINE [Suspect]
     Dosage: ORAL
     Route: 048
  2. SERTRALINE [Suspect]
     Dosage: ORAL
     Route: 048
  3. DULOXETINE HYDROCHLORIDE               (DULOXETINE HYDROCHLORIDE) [Suspect]
     Dosage: ORAL
     Route: 048

REACTIONS (2)
  - COMPLETED SUICIDE [None]
  - MULTIPLE DRUG OVERDOSE INTENTIONAL [None]
